FAERS Safety Report 6125601-4 (Version None)
Quarter: 2009Q1

REPORT INFORMATION
  Report Type: 
  Country: None (occurrence: None)
  Receive Date: 20090320
  Receipt Date: 20090311
  Transmission Date: 20090719
  Serious: Yes (Other)
  Sender: FDA-Public Use
  Company Number: FR-JNJFOC-20090303133

PATIENT
  Sex: Female
  Weight: 48 kg

DRUGS (5)
  1. REMICADE [Suspect]
     Route: 042
  2. REMICADE [Suspect]
     Route: 042
  3. REMICADE [Suspect]
     Indication: CROHN'S DISEASE
     Route: 042
  4. AZATHIOPRINE [Suspect]
     Indication: CROHN'S DISEASE
  5. COLCHICINE [Concomitant]
     Indication: BEHCET'S SYNDROME

REACTIONS (2)
  - EPSTEIN-BARR VIRUS INFECTION [None]
  - MYCOSIS FUNGOIDES [None]
